FAERS Safety Report 4719269-9 (Version None)
Quarter: 2005Q3

REPORT INFORMATION
  Report Type: 
  Country: None (occurrence: None)
  Receive Date: 20050719
  Receipt Date: 20050704
  Transmission Date: 20060218
  Serious: Yes (Death)
  Sender: FDA-Public Use
  Company Number: GBR-2005-0001778

PATIENT
  Age: 72 Year
  Sex: Female

DRUGS (2)
  1. OXYCONTIN [Suspect]
     Dosage: 5 MG
     Dates: start: 20041217
  2. ACETAMINOPHEN [Concomitant]

REACTIONS (2)
  - BRONCHIAL CARCINOMA [None]
  - DISEASE PROGRESSION [None]
